FAERS Safety Report 13566666 (Version 1)
Quarter: 2017Q2

REPORT INFORMATION
  Report Type: Spontaneous
  Country: JP (occurrence: JP)
  Receive Date: 20170522
  Receipt Date: 20170522
  Transmission Date: 20170830
  Serious: Yes (Hospitalization)
  Sender: FDA-Public Use
  Company Number: JP-009507513-1704JPN001558J

PATIENT

DRUGS (1)
  1. FOSAMAC TABLETS-5 [Suspect]
     Active Substance: ALENDRONATE SODIUM
     Dosage: 5 MG, QD
     Route: 048
     Dates: end: 2017

REACTIONS (2)
  - Fracture [Unknown]
  - Adverse event [Unknown]

NARRATIVE: CASE EVENT DATE: 201704
